FAERS Safety Report 12384387 (Version 1)
Quarter: 2016Q2

REPORT INFORMATION
  Report Type: Spontaneous
  Country: DE (occurrence: DE)
  Receive Date: 20160519
  Receipt Date: 20160519
  Transmission Date: 20160815
  Serious: Yes (Hospitalization, Other)
  Sender: FDA-Public Use
  Company Number: DE-009507513-1605DEU006510

PATIENT
  Age: 67 Year
  Sex: Female

DRUGS (7)
  1. TREVILOR RETARD [Suspect]
     Active Substance: VENLAFAXINE HYDROCHLORIDE
     Dosage: 75 MG, QD
     Route: 065
     Dates: start: 20160108, end: 20160118
  2. PREGABALIN. [Suspect]
     Active Substance: PREGABALIN
     Indication: PRODUCT USED FOR UNKNOWN INDICATION
     Dosage: 75 MG, ONCE DAILY IN THE EVENING (1X/DAY, 0-0-1)
     Route: 065
     Dates: end: 2016
  3. MELPERONE [Concomitant]
     Active Substance: MELPERONE
     Dosage: 25 MG, ONCE DAILY IN THE EVENING (0-0-1)
     Route: 065
  4. TREVILOR RETARD [Suspect]
     Active Substance: VENLAFAXINE HYDROCHLORIDE
     Dosage: 37.5 MG , QD
     Route: 065
     Dates: start: 20160119, end: 201601
  5. TREVILOR RETARD [Suspect]
     Active Substance: VENLAFAXINE HYDROCHLORIDE
     Indication: PRODUCT USED FOR UNKNOWN INDICATION
     Dosage: 150 MG, ONCE DAILY IN THE MORNING (1X/DAY, 1-0-0)
     Route: 065
     Dates: end: 20160107
  6. LYRICA [Suspect]
     Active Substance: PREGABALIN
     Indication: PRODUCT USED FOR UNKNOWN INDICATION
     Dosage: UNK
     Route: 065
     Dates: end: 2016
  7. SIMVASTATIN. [Suspect]
     Active Substance: SIMVASTATIN
     Indication: PRODUCT USED FOR UNKNOWN INDICATION
     Dosage: 40 MG, ONCE DAILY IN THE EVENING (1X/DAY, 0-0-1)
     Route: 065
     Dates: end: 2016

REACTIONS (12)
  - Acute myeloid leukaemia [Unknown]
  - Hiatus hernia [Unknown]
  - Circulatory collapse [Unknown]
  - Hypokalaemia [Recovering/Resolving]
  - Erosive duodenitis [Recovering/Resolving]
  - Gastrointestinal haemorrhage [Recovering/Resolving]
  - Gastritis erosive [Recovering/Resolving]
  - Pancytopenia [Recovering/Resolving]
  - Myelodysplastic syndrome [Unknown]
  - Laceration [Unknown]
  - Pneumonia [Recovering/Resolving]
  - Hyponatraemia [Recovering/Resolving]

NARRATIVE: CASE EVENT DATE: 201601
